FAERS Safety Report 4602820-7 (Version None)
Quarter: 2005Q1

REPORT INFORMATION
  Report Type: 
  Country: None (occurrence: None)
  Receive Date: 20050307
  Receipt Date: 20050216
  Transmission Date: 20050727
  Serious: Yes (Life-Threatening, Hospitalization)
  Sender: FDA-Public Use
  Company Number: 2005037650

PATIENT
  Age: 91 Year
  Sex: Female
  Weight: 41 kg

DRUGS (3)
  1. PHENYTOIN [Suspect]
     Indication: EPILEPSY
     Dosage: 250 MG (250 MG, 1 IN 1 D), ORAL
     Route: 048
     Dates: start: 20040913
  2. PHENYTOIN [Suspect]
     Indication: MENINGIOMA
     Dosage: 250 MG (250 MG, 1 IN 1 D), ORAL
     Route: 048
     Dates: start: 20040913
  3. RISEDRONATE SODIUM (RISEDRONATE SODIUM) [Concomitant]

REACTIONS (6)
  - ANAEMIA [None]
  - EOSINOPHIL COUNT INCREASED [None]
  - LIVER FUNCTION TEST ABNORMAL [None]
  - PLATELET COUNT INCREASED [None]
  - PRURITUS GENERALISED [None]
  - RASH [None]
